FAERS Safety Report 4315348-9 (Version None)
Quarter: 2004Q1

REPORT INFORMATION
  Report Type: 
  Country: None (occurrence: None)
  Receive Date: 20040309
  Receipt Date: 20040224
  Transmission Date: 20041129
  Serious: Yes (Hospitalization)
  Sender: FDA-Public Use
  Company Number: USA031049295

PATIENT
  Age: 8 Year
  Sex: Male

DRUGS (4)
  1. STRATTERA [Suspect]
     Indication: PSYCHOMOTOR HYPERACTIVITY
     Dosage: 18 MG/DAY
  2. ZYPREXA [Suspect]
     Dosage: 2.5 MG/2 DAY
     Dates: start: 20010101
  3. CLONIDINE [Concomitant]
  4. METADATE(METHYLPHENIDATE) [Concomitant]

REACTIONS (11)
  - ABASIA [None]
  - ABNORMAL BEHAVIOUR [None]
  - AGGRESSION [None]
  - ASTHENIA [None]
  - CEREBROVASCULAR ACCIDENT [None]
  - CONVULSION [None]
  - HEMIPARESIS [None]
  - MEDICATION ERROR [None]
  - REGRESSIVE BEHAVIOUR [None]
  - SPEECH DISORDER [None]
  - STARING [None]
